FAERS Safety Report 6935863-9 (Version None)
Quarter: 2010Q3

REPORT INFORMATION
  Report Type: 
  Country: None (occurrence: None)
  Receive Date: 20100817
  Receipt Date: 20100809
  Transmission Date: 20110219
  Serious: Yes (Death)
  Sender: FDA-Public Use
  Company Number: 2010US003189

PATIENT
  Age: 8 Year
  Sex: Male
  Weight: 20 kg

DRUGS (7)
  1. AMBISOME [Suspect]
     Indication: PRODUCT USED FOR UNKNOWN INDICATION
     Dosage: 5 MG/KG, /D, IV NOS
     Route: 042
  2. DORMONID (MIDAZOLAM) [Concomitant]
  3. FENTANYL-100 [Concomitant]
  4. METHYLPREDNISOLONE [Concomitant]
  5. TRANSAMIN (TRANEXAMIC ACID) [Concomitant]
  6. VITAMIN K (VITAMIN K NOS) [Concomitant]
  7. HYDRALAZINE [Concomitant]

REACTIONS (2)
  - CARDIAC ARREST [None]
  - VENTRICULAR TACHYCARDIA [None]
